FAERS Safety Report 17193391 (Version 4)
Quarter: 2020Q1

REPORT INFORMATION
  Report Type: Report from Study
  Country: CA (occurrence: CA)
  Receive Date: 20191223
  Receipt Date: 20200317
  Transmission Date: 20200409
  Serious: Yes (Other)
  Sender: FDA-Public Use
  Company Number: CA-JNJFOC-20191221440

PATIENT
  Age: 66 Year
  Sex: Male
  Weight: 120 kg

DRUGS (1)
  1. REMICADE [Suspect]
     Active Substance: INFLIXIMAB
     Indication: ANKYLOSING SPONDYLITIS
     Route: 042
     Dates: start: 20110629

REACTIONS (4)
  - Off label use [Unknown]
  - Neoplasm malignant [Not Recovered/Not Resolved]
  - Incorrect drug administration rate [Unknown]
  - Prostate cancer [Unknown]

NARRATIVE: CASE EVENT DATE: 20190131
